FAERS Safety Report 23273087 (Version 1)
Quarter: 2023Q4

REPORT INFORMATION
  Report Type: Spontaneous
  Country: US (occurrence: None)
  Receive Date: 20231207
  Receipt Date: 20231207
  Transmission Date: 20240110
  Serious: Yes (Other)
  Sender: FDA-Public Use
  Company Number: None

PATIENT
  Sex: Female

DRUGS (3)
  1. KESIMPTA [Suspect]
     Active Substance: OFATUMUMAB
     Indication: Multiple sclerosis
     Dosage: OTHER QUANTITY : 20MG/0.4ML;?FREQUENCY : MONTHLY;?
     Route: 058
     Dates: start: 20220427
  2. LEVETIRACETAM [Concomitant]
     Active Substance: LEVETIRACETAM
  3. TOPIRAMATE [Concomitant]
     Active Substance: TOPIRAMATE

REACTIONS (13)
  - Back pain [None]
  - Balance disorder [None]
  - Diarrhoea [None]
  - Fatigue [None]
  - Alopecia [None]
  - Headache [None]
  - Pruritus [None]
  - Sleep disorder [None]
  - Paraesthesia [None]
  - Product dose omission in error [None]
  - Mobility decreased [None]
  - Fall [None]
  - Condition aggravated [None]
